FAERS Safety Report 23945139 (Version 1)
Quarter: 2024Q2

REPORT INFORMATION
  Report Type: Spontaneous
  Country: RU (occurrence: RU)
  Receive Date: 20240606
  Receipt Date: 20240606
  Transmission Date: 20240716
  Serious: Yes (Death, Hospitalization, Other)
  Sender: FDA-Public Use
  Company Number: RU-SA-SAC20240605001027

PATIENT
  Age: 71 Year
  Sex: Male
  Weight: 115 kg

DRUGS (21)
  1. PLAVIX [Suspect]
     Active Substance: CLOPIDOGREL BISULFATE
     Indication: Stent placement
     Dosage: 75 MG, QD
     Route: 048
  2. LOVENOX [Suspect]
     Active Substance: ENOXAPARIN SODIUM
     Indication: Thrombosis prophylaxis
     Dosage: 40 MG, QD
     Route: 058
  3. ARIXTRA [Suspect]
     Active Substance: FONDAPARINUX SODIUM
     Indication: Thrombosis prophylaxis
     Dosage: 5 MG/ML, TOTAL
     Route: 058
  4. ACETAMINOPHEN [Concomitant]
     Active Substance: ACETAMINOPHEN
  5. ASPIRIN [Concomitant]
     Active Substance: ASPIRIN
  6. ALLOPURINOL [Concomitant]
     Active Substance: ALLOPURINOL
  7. ATROPINE [Concomitant]
     Active Substance: ATROPINE\ATROPINE SULFATE
  8. BISOPROLOL [Concomitant]
     Active Substance: BISOPROLOL\BISOPROLOL FUMARATE
  9. DIMENHYDRINATE [Concomitant]
     Active Substance: DIMENHYDRINATE
  10. DULOXETINE HYDROCHLORIDE [Concomitant]
     Active Substance: DULOXETINE HYDROCHLORIDE
  11. ENTRESTO [Concomitant]
     Active Substance: SACUBITRIL\VALSARTAN
  12. EPLERENONE [Concomitant]
     Active Substance: EPLERENONE
  13. EZETIMIBE [Concomitant]
     Active Substance: EZETIMIBE
  14. FUROSEMIDE [Concomitant]
     Active Substance: FUROSEMIDE
  15. GLYCERIN [Concomitant]
     Active Substance: GLYCERIN
  16. INSULIN LISPRO [Concomitant]
     Active Substance: INSULIN LISPRO
  17. LORAZEPAM [Concomitant]
     Active Substance: LORAZEPAM
  18. NITROGLYCERIN [Concomitant]
     Active Substance: NITROGLYCERIN
  19. ONDANSETRON [Concomitant]
     Active Substance: ONDANSETRON
  20. PANTOPRAZOLE [Concomitant]
     Active Substance: PANTOPRAZOLE
  21. POTASSIUM CHLORIDE [Concomitant]
     Active Substance: POTASSIUM CHLORIDE

REACTIONS (2)
  - Gastrointestinal injury [Fatal]
  - Upper gastrointestinal haemorrhage [Fatal]
